FAERS Safety Report 7549601-2 (Version None)
Quarter: 2011Q2

REPORT INFORMATION
  Report Type: 
  Country: None (occurrence: None)
  Receive Date: 20110615
  Receipt Date: 20110404
  Transmission Date: 20111010
  Serious: Yes (Other)
  Sender: FDA-Public Use
  Company Number: B0712090A

PATIENT
  Sex: Female

DRUGS (4)
  1. DESLORATADINE [Concomitant]
  2. AEROCHAMBER [Concomitant]
  3. FLUTICASONE PROPIONATE [Suspect]
     Indication: ASTHMA
     Dosage: 200MCG PER DAY
     Route: 055
     Dates: start: 20110418, end: 20110506
  4. VENTOLIN HFA [Concomitant]

REACTIONS (7)
  - ABNORMAL BEHAVIOUR [None]
  - CONDITION AGGRAVATED [None]
  - AGGRESSION [None]
  - ANGER [None]
  - DRUG INEFFECTIVE [None]
  - PERSONALITY CHANGE [None]
  - DYSPNOEA [None]
